FAERS Safety Report 8610281-6 (Version None)
Quarter: 2012Q3

REPORT INFORMATION
  Report Type: 
  Country: None (occurrence: None)
  Receive Date: 20120810
  Receipt Date: 20120810
  Transmission Date: 20120928
  Serious: Yes (Other)
  Sender: FDA-Public Use
  Company Number: None

PATIENT
  Age: 47 Year
  Sex: Female

DRUGS (1)
  1. CLOFAZIMINE 50 MG [Suspect]
     Indication: MYCOBACTERIUM ABSCESSUS INFECTION
     Dosage: 200 MG DAILY PO
     Route: 048

REACTIONS (5)
  - INCORRECT DOSE ADMINISTERED [None]
  - NECK PAIN [None]
  - DRUG DISPENSING ERROR [None]
  - HEADACHE [None]
  - NEUROPATHY PERIPHERAL [None]
